FAERS Safety Report 20935359 (Version 3)
Quarter: 2025Q2

REPORT INFORMATION
  Report Type: Spontaneous
  Country: CZ (occurrence: CZ)
  Receive Date: 20220609
  Receipt Date: 20250603
  Transmission Date: 20250717
  Serious: Yes (Other)
  Sender: AUROBINDO
  Company Number: CZ-EMA-DD-20220525-7180175-160953

PATIENT
  Age: 48 Year
  Sex: Female

DRUGS (15)
  1. METOPROLOL [Suspect]
     Active Substance: METOPROLOL
     Indication: Migraine
     Dosage: 100 MILLIGRAM, ONCE A DAY (50 MG, BID/ 2X 50 MG FOR THREE MONTHS)
     Route: 065
     Dates: start: 2013
  2. PREGABALIN [Suspect]
     Active Substance: PREGABALIN
     Indication: Migraine prophylaxis
     Route: 065
  3. PREGABALIN [Suspect]
     Active Substance: PREGABALIN
     Indication: Migraine
  4. VALPROATE [Suspect]
     Active Substance: VALPROIC ACID
     Indication: Migraine
     Dosage: 600 MILLIGRAM, ONCE A DAY (300 MG, BID)
     Route: 065
     Dates: start: 2013
  5. VALPROIC ACID [Suspect]
     Active Substance: VALPROIC ACID
     Indication: Migraine prophylaxis
     Route: 065
  6. AMITRIPTYLINE [Concomitant]
     Active Substance: AMITRIPTYLINE
     Indication: Migraine prophylaxis
     Dosage: 50 MILLIGRAM, ONCE A DAY
     Route: 065
  7. AMITRIPTYLINE [Concomitant]
     Active Substance: AMITRIPTYLINE
     Indication: Migraine
  8. CINNARIZINE [Concomitant]
     Active Substance: CINNARIZINE
     Indication: Migraine prophylaxis
     Dosage: 150 MILLIGRAM (2X 75 MG FOR THREE MONTHS)
     Route: 065
  9. CINNARIZINE [Concomitant]
     Active Substance: CINNARIZINE
     Indication: Migraine
  10. VENLAFAXINE [Concomitant]
     Active Substance: VENLAFAXINE HYDROCHLORIDE
     Indication: Migraine prophylaxis
     Dosage: 150 MILLIGRAM, ONCE A DAY
     Route: 065
  11. VENLAFAXINE [Concomitant]
     Active Substance: VENLAFAXINE HYDROCHLORIDE
     Indication: Migraine
  12. TOPIRAMATE [Concomitant]
     Active Substance: TOPIRAMATE
     Indication: Migraine prophylaxis
     Dosage: 25 MILLIGRAM, TWO TIMES A DAY (FOR ONE MONTH)
     Route: 065
  13. TOPIRAMATE [Concomitant]
     Active Substance: TOPIRAMATE
     Indication: Migraine
     Dosage: 50 MILLIGRAM, TWO TIMES A DAY ( 2? 50 MG)
     Route: 065
  14. ELETRIPTAN [Concomitant]
     Active Substance: ELETRIPTAN
     Indication: Migraine prophylaxis
     Route: 065
  15. ELETRIPTAN [Concomitant]
     Active Substance: ELETRIPTAN
     Indication: Migraine

REACTIONS (4)
  - Leukopenia [Recovered/Resolved]
  - Therapeutic product effect decreased [Unknown]
  - Product use in unapproved indication [Unknown]
  - Therapy partial responder [Unknown]

NARRATIVE: CASE EVENT DATE: 20190101
